FAERS Safety Report 4898161-3 (Version None)
Quarter: 2006Q1

REPORT INFORMATION
  Report Type: 
  Country: None (occurrence: None)
  Receive Date: 20060127
  Receipt Date: 20060111
  Transmission Date: 20060701
  Serious: Yes (Hospitalization, Disabling)
  Sender: FDA-Public Use
  Company Number: 401244

PATIENT
  Age: 14 Year
  Sex: Male
  Weight: 89.8 kg

DRUGS (2)
  1. ACCUTANE [Suspect]
     Indication: ACNE
     Dosage: 40 MG 2 PER DAY ORAL
     Route: 048
     Dates: start: 19890216, end: 19950319
  2. ACETAMINOPHEN [Concomitant]

REACTIONS (23)
  - BLOOD CHOLESTEROL INCREASED [None]
  - BLOOD SODIUM DECREASED [None]
  - BONE METABOLISM DISORDER [None]
  - CHEST PAIN [None]
  - DIALYSIS [None]
  - DYSPEPSIA [None]
  - EPISTAXIS [None]
  - FATIGUE [None]
  - FRACTURE [None]
  - GLOMERULOSCLEROSIS [None]
  - HAEMATOCRIT DECREASED [None]
  - HYPERTENSION [None]
  - MULTI-ORGAN DISORDER [None]
  - MUSCLE SPASMS [None]
  - NAUSEA [None]
  - NIGHT BLINDNESS [None]
  - OBESITY [None]
  - PARAESTHESIA ORAL [None]
  - RENAL CYST [None]
  - RENAL FAILURE CHRONIC [None]
  - RENAL TRANSPLANT [None]
  - SINUS TACHYCARDIA [None]
  - WOUND [None]
